FAERS Safety Report 21241859 (Version 1)
Quarter: 2022Q3

REPORT INFORMATION
  Report Type: Spontaneous
  Country: US (occurrence: US)
  Receive Date: 20220823
  Receipt Date: 20220823
  Transmission Date: 20221027
  Serious: Yes (Other)
  Sender: FDA-Public Use
  Company Number: US-BAUSCH-BL-2022-020390

PATIENT
  Age: 13 Year
  Sex: Female

DRUGS (4)
  1. DEXAMETHASONE\NEOMYCIN SULFATE\POLYMYXIN B SULFATE [Suspect]
     Active Substance: DEXAMETHASONE\NEOMYCIN SULFATE\POLYMYXIN B SULFATE
     Indication: Product used for unknown indication
     Dosage: IN BOTH EYES
     Route: 047
  2. METHOTREXATE [Concomitant]
     Active Substance: METHOTREXATE
     Indication: Juvenile idiopathic arthritis
  3. METHOTREXATE [Concomitant]
     Active Substance: METHOTREXATE
     Indication: Psoriatic arthropathy
  4. ETANERCEPT [Concomitant]
     Active Substance: ETANERCEPT
     Indication: Psoriasis
     Dates: start: 201806

REACTIONS (1)
  - Iridocyclitis [Recovered/Resolved]
